FAERS Safety Report 10174715 (Version 1)
Quarter: 2014Q2

REPORT INFORMATION
  Report Type: Spontaneous
  Country: US (occurrence: None)
  Receive Date: 20140416
  Receipt Date: 20140416
  Transmission Date: 20141212
  Serious: Yes (Hospitalization)
  Sender: FDA-Public Use
  Company Number: 163-POMAL-13112352

PATIENT
  Age: 64 Year
  Sex: Male

DRUGS (5)
  1. POMALYST [Suspect]
     Indication: PLASMA CELL MYELOMA
     Route: 048
     Dates: start: 201303
  2. STOOL SOFTEN (DOCUSATE SODIUM) (CAPSULES) [Concomitant]
  3. COUDMADIN (WARFARIN SODIUM) (TABLETS) [Concomitant]
  4. LANTUS (INSULIN GLARGINE) [Concomitant]
  5. SODIUM BICARBONATE (SODIUM BICARBONATE) (TABLETS) [Concomitant]

REACTIONS (1)
  - Blood creatinine increased [None]
